FAERS Safety Report 19964364 (Version 2)
Quarter: 2021Q4

REPORT INFORMATION
  Report Type: Spontaneous
  Country: CO (occurrence: CO)
  Receive Date: 20211018
  Receipt Date: 20211122
  Transmission Date: 20220303
  Serious: Yes (Other)
  Sender: FDA-Public Use
  Company Number: CO-PFIZER INC-202101333202

PATIENT
  Age: 48 Year
  Sex: Male

DRUGS (1)
  1. ENBREL [Suspect]
     Active Substance: ETANERCEPT
     Indication: Ankylosing spondylitis
     Dosage: 50 MG, WEEKLY (EACH 8 DAYS)
     Route: 058
     Dates: start: 2004

REACTIONS (8)
  - Intestinal haemorrhage [Unknown]
  - Decreased immune responsiveness [Unknown]
  - Amnesia [Unknown]
  - Gastric disorder [Unknown]
  - Abdominal discomfort [Unknown]
  - Food intolerance [Unknown]
  - Injury [Unknown]
  - Influenza [Unknown]

NARRATIVE: CASE EVENT DATE: 20040101
